FAERS Safety Report 12761168 (Version 2)
Quarter: 2017Q2

REPORT INFORMATION
  Report Type: Spontaneous
  Country: US (occurrence: US)
  Receive Date: 20160920
  Receipt Date: 20170531
  Transmission Date: 20170830
  Serious: Yes (Other)
  Sender: FDA-Public Use
  Company Number: US-STRIDES ARCOLAB LIMITED-2016SP012667

PATIENT

DRUGS (2)
  1. METRONIDAZOLE. [Suspect]
     Active Substance: METRONIDAZOLE
     Indication: ABDOMINAL ABSCESS
     Dosage: 500 MG, TID(CUMULATIVE DOSE OF 42G)
     Route: 048
  2. LEVOFLOXACIN. [Concomitant]
     Active Substance: LEVOFLOXACIN
     Indication: ABDOMINAL ABSCESS
     Dosage: 500 MG, QD
     Route: 048

REACTIONS (4)
  - Cerebellar syndrome [Recovered/Resolved]
  - Ataxia [Recovered/Resolved]
  - Toxic encephalopathy [Recovered/Resolved]
  - Dysarthria [Recovered/Resolved]
